FAERS Safety Report 10627441 (Version 1)
Quarter: 2014Q4

REPORT INFORMATION
  Report Type: Spontaneous
  Country: FR (occurrence: FR)
  Receive Date: 20141205
  Receipt Date: 20141205
  Transmission Date: 20150529
  Serious: Yes (Disabling)
  Sender: FDA-Public Use
  Company Number: FR-ROCHE-1502760

PATIENT
  Age: 50 Year
  Sex: Female

DRUGS (4)
  1. MABTHERA [Suspect]
     Active Substance: RITUXIMAB
     Indication: MANTLE CELL LYMPHOMA STAGE IV
     Route: 042
     Dates: start: 20140917, end: 20141019
  2. ARACYTINE [Suspect]
     Active Substance: CYTARABINE
     Indication: MANTLE CELL LYMPHOMA STAGE IV
     Route: 042
     Dates: start: 20140918, end: 20141030
  3. DEXAMETHASONE. [Suspect]
     Active Substance: DEXAMETHASONE
     Indication: MANTLE CELL LYMPHOMA STAGE IV
     Route: 042
     Dates: start: 20140917, end: 20141101
  4. CISPLATINE [Suspect]
     Active Substance: CISPLATIN
     Indication: MANTLE CELL LYMPHOMA STAGE IV
     Route: 042
     Dates: start: 20140917, end: 20141029

REACTIONS (1)
  - Hypoacusis [Not Recovered/Not Resolved]
